FAERS Safety Report 21423616 (Version 2)
Quarter: 2023Q2

REPORT INFORMATION
  Report Type: Report from Study
  Country: FR (occurrence: FR)
  Receive Date: 20221007
  Receipt Date: 20230630
  Transmission Date: 20230722
  Serious: Yes (Other)
  Sender: FDA-Public Use
  Company Number: FR-GW PHARMA-2022-FR-031211

PATIENT
  Age: 12 Year
  Sex: Male

DRUGS (5)
  1. CANNABIDIOL [Suspect]
     Active Substance: CANNABIDIOL
     Indication: Severe myoclonic epilepsy of infancy
     Dosage: 10 MG/KG/DAY INCREASED TO 20 MG/KG/DAY OVER 2.5 YEARS
     Dates: start: 2019, end: 2022
  2. CANNABIDIOL [Suspect]
     Active Substance: CANNABIDIOL
     Dosage: 15 MG/KG/DAY
  3. STIRIPENTOL [Concomitant]
     Active Substance: STIRIPENTOL
     Indication: Product used for unknown indication
     Dosage: 40 MG/KG/DAY
  4. VALPROIC ACID [Concomitant]
     Active Substance: VALPROIC ACID
     Indication: Product used for unknown indication
     Dosage: 20 MG/KG/DAY
  5. CLOBAZAM [Concomitant]
     Active Substance: CLOBAZAM
     Indication: Product used for unknown indication
     Dosage: 0.35 MG/KG/DAY

REACTIONS (5)
  - Generalised tonic-clonic seizure [Unknown]
  - Seizure [Recovered/Resolved]
  - Condition aggravated [Recovered/Resolved]
  - Fatigue [Recovered/Resolved]
  - Pyrexia [Unknown]

NARRATIVE: CASE EVENT DATE: 20190101
